FAERS Safety Report 8342688-9 (Version None)
Quarter: 2012Q2

REPORT INFORMATION
  Report Type: 
  Country: None (occurrence: None)
  Receive Date: 20120508
  Receipt Date: 20120502
  Transmission Date: 20120825
  Serious: Yes (Other)
  Sender: FDA-Public Use
  Company Number: US-SHIRE-ALL1-2012-02244

PATIENT
  Sex: Male
  Weight: 27.664 kg

DRUGS (2)
  1. VYVANSE [Suspect]
     Indication: ATTENTION DEFICIT/HYPERACTIVITY DISORDER
     Dosage: UNK, 1X/DAY:QD
     Route: 048
     Dates: start: 20120427, end: 20120427
  2. RISPERDAL [Concomitant]
     Indication: AGGRESSION
     Dosage: UNK, UNKNOWN
     Route: 048

REACTIONS (3)
  - HALLUCINATION, VISUAL [None]
  - FEAR [None]
  - CRYING [None]
